FAERS Safety Report 8129813-X (Version None)
Quarter: 2012Q1

REPORT INFORMATION
  Report Type: 
  Country: None (occurrence: None)
  Receive Date: 20120210
  Receipt Date: 20120210
  Transmission Date: 20120608
  Serious: No
  Sender: FDA-Public Use
  Company Number: None

PATIENT
  Age: 4 Year
  Sex: Female
  Weight: 19.504 kg

DRUGS (1)
  1. BUDESONIDE [Suspect]
     Indication: ASTHMA
     Dosage: 1 AMPULE
     Route: 055
     Dates: start: 20110727, end: 20120111

REACTIONS (1)
  - DENTAL CARIES [None]
